FAERS Safety Report 17644326 (Version 1)
Quarter: 2020Q2

REPORT INFORMATION
  Report Type: Spontaneous
  Country: US (occurrence: US)
  Receive Date: 20200408
  Receipt Date: 20200408
  Transmission Date: 20200713
  Serious: No
  Sender: FDA-Public Use
  Company Number: None

PATIENT
  Age: 75 Year
  Weight: 74.84 kg

DRUGS (9)
  1. CANDESARTAN 22MG TABLET [Concomitant]
  2. NIFEDIPINE ER 90MG TABLET [Concomitant]
  3. CALCIUM 500MG [Concomitant]
  4. CENTRUM SILVER ADULT 50+ [Concomitant]
  5. LIQUID TURMERIC 1000MG [Concomitant]
  6. OMEGA 3 FISH OIL 1500MG [Concomitant]
  7. LIQUID B-COMPLEX WITH B-12 [Concomitant]
  8. MOTEGRITY [Suspect]
     Active Substance: PRUCALOPRIDE SUCCINATE
     Indication: CONSTIPATION
     Dosage: ?          QUANTITY:1 DF DOSAGE FORM;?
     Route: 048
     Dates: start: 20200220, end: 20200220
  9. ROSUVASTATIN CALCIUM. [Concomitant]
     Active Substance: ROSUVASTATIN CALCIUM

REACTIONS (1)
  - Headache [None]

NARRATIVE: CASE EVENT DATE: 20200220
